FAERS Safety Report 15320884 (Version 1)
Quarter: 2018Q3

REPORT INFORMATION
  Report Type: Spontaneous
  Country: DE (occurrence: DE)
  Receive Date: 20180827
  Receipt Date: 20180827
  Transmission Date: 20181010
  Serious: Yes (Death)
  Sender: FDA-Public Use
  Company Number: DE-LINDE-DE-LHC-2018202

PATIENT
  Sex: Female

DRUGS (1)
  1. CARBON DIOXIDE (GENERIC) [Suspect]
     Active Substance: CARBON DIOXIDE
     Indication: ENDOSCOPY BILIARY TRACT

REACTIONS (3)
  - Multiple organ dysfunction syndrome [Fatal]
  - Air embolism [Fatal]
  - Arrhythmia [Fatal]
